FAERS Safety Report 15935567 (Version 3)
Quarter: 2019Q1

REPORT INFORMATION
  Report Type: Spontaneous
  Country: DE (occurrence: DE)
  Receive Date: 20190208
  Receipt Date: 20190301
  Transmission Date: 20190417
  Serious: Yes (Hospitalization, Other)
  Sender: FDA-Public Use
  Company Number: DE-ACCORD-106363

PATIENT
  Age: 61 Year
  Sex: Male

DRUGS (4)
  1. QUILONUM RETARD [Suspect]
     Active Substance: LITHIUM CARBONATE
     Indication: PRODUCT USED FOR UNKNOWN INDICATION
     Dosage: 1125 MG, UNK
     Route: 048
  2. ARIPIPRAZOLE. [Suspect]
     Active Substance: ARIPIPRAZOLE
     Indication: PRODUCT USED FOR UNKNOWN INDICATION
     Dosage: DAILY DOSE: 5 MG MILLIGRAM(S) EVERY DAY
     Route: 048
  3. CIATYL-Z ACUPHASE [Suspect]
     Active Substance: ZUCLOPENTHIXOL ACETATE
     Indication: PRODUCT USED FOR UNKNOWN INDICATION
     Dosage: DAILY DOSE: 150 MG MILLIGRAM(S) EVERY DAY
     Route: 030
     Dates: start: 20170107
  4. SEROQUEL [Suspect]
     Active Substance: QUETIAPINE FUMARATE
     Indication: PRODUCT USED FOR UNKNOWN INDICATION
     Dosage: 100 MG, UNK, ALSO RECEIVED 200 MG ON 04-JAN-2017,
     Route: 048
     Dates: start: 20161231, end: 20170103

REACTIONS (14)
  - Compulsions [Unknown]
  - Chills [Unknown]
  - Speech disorder [Unknown]
  - Aphasia [Unknown]
  - Underdose [Unknown]
  - Hypokinesia [Unknown]
  - Parkinson^s disease [Unknown]
  - Dysgraphia [Unknown]
  - Movement disorder [Unknown]
  - Extrapyramidal disorder [Unknown]
  - Restlessness [Unknown]
  - Feeding disorder [Unknown]
  - Akathisia [Unknown]
  - Dyskinesia [Recovered/Resolved]

NARRATIVE: CASE EVENT DATE: 20170112
